FAERS Safety Report 12315707 (Version 1)
Quarter: 2016Q2

REPORT INFORMATION
  Report Type: Spontaneous
  Country: US (occurrence: US)
  Receive Date: 20160428
  Receipt Date: 20160428
  Transmission Date: 20160815
  Serious: Yes (Other)
  Sender: FDA-Public Use
  Company Number: US-TEVA-655654USA

PATIENT
  Age: 1 Year
  Sex: Male
  Weight: 11.35 kg

DRUGS (1)
  1. AMOXICILLIN. [Suspect]
     Active Substance: AMOXICILLIN
     Indication: PHARYNGITIS STREPTOCOCCAL
     Dosage: 400 MG/5ML
     Route: 048

REACTIONS (3)
  - Urticaria [Unknown]
  - Eye swelling [Unknown]
  - Swelling [Unknown]

NARRATIVE: CASE EVENT DATE: 20160422
